FAERS Safety Report 11558686 (Version 1)
Quarter: 2015Q3

REPORT INFORMATION
  Report Type: Spontaneous
  Country: US (occurrence: None)
  Receive Date: 20150925
  Receipt Date: 20150925
  Transmission Date: 20151125
  Serious: No
  Sender: FDA-Public Use
  Company Number: None

PATIENT
  Age: 77 Year
  Sex: Male

DRUGS (1)
  1. STIVARGA [Suspect]
     Active Substance: REGORAFENIB
     Indication: COLON CANCER
     Dosage: 4 TABLETS IN THE MORNING FOR 21 DAYS BY MOUTH
     Route: 048
     Dates: start: 20150618

REACTIONS (2)
  - Abdominal pain upper [None]
  - Weight decreased [None]

NARRATIVE: CASE EVENT DATE: 20150918
